FAERS Safety Report 19114843 (Version 2)
Quarter: 2021Q2

REPORT INFORMATION
  Report Type: Spontaneous
  Country: US (occurrence: US)
  Receive Date: 20210409
  Receipt Date: 20210610
  Transmission Date: 20210717
  Serious: No
  Sender: FDA-Public Use
  Company Number: US-PFIZER INC-2021216845

PATIENT
  Sex: Male

DRUGS (1)
  1. GENOTROPIN [Suspect]
     Active Substance: SOMATROPIN
     Dosage: 0.4 MG
     Dates: start: 202101

REACTIONS (3)
  - Wrong technique in device usage process [Unknown]
  - Drug dose omission by device [Unknown]
  - Device breakage [Unknown]
